FAERS Safety Report 18469750 (Version 4)
Quarter: 2021Q1

REPORT INFORMATION
  Report Type: Spontaneous
  Country: US (occurrence: US)
  Receive Date: 20201105
  Receipt Date: 20210203
  Transmission Date: 20210419
  Serious: No
  Sender: FDA-Public Use
  Company Number: US-PFIZER INC-2020427383

PATIENT
  Age: 71 Year

DRUGS (1)
  1. DETROL LA [Suspect]
     Active Substance: TOLTERODINE TARTRATE
     Dosage: 2 MG, 2X/DAY

REACTIONS (2)
  - Off label use [Unknown]
  - Visual impairment [Unknown]
